FAERS Safety Report 10455049 (Version 2)
Quarter: 2014Q3

REPORT INFORMATION
  Report Type: Spontaneous
  Country: BE (occurrence: BE)
  Receive Date: 20140915
  Receipt Date: 20140915
  Transmission Date: 20150326
  Serious: Yes (Life-Threatening, Hospitalization)
  Sender: FDA-Public Use
  Company Number: BE-BRISTOL-MYERS SQUIBB COMPANY-21358031

PATIENT
  Age: 75 Year
  Sex: Female
  Weight: 60 kg

DRUGS (8)
  1. ELIQUIS [Suspect]
     Active Substance: APIXABAN
     Indication: CEREBROVASCULAR ACCIDENT PROPHYLAXIS
     Dosage: TABS
  2. PANTOMED [Concomitant]
     Active Substance: DEXPANTHENOL
     Indication: OESOPHAGITIS
  3. L-THYROXINE [Concomitant]
     Active Substance: LEVOTHYROXINE
     Indication: HYPOTHYROIDISM
  4. BEFACT [Concomitant]
  5. PANTOMED [Concomitant]
     Active Substance: DEXPANTHENOL
     Indication: GASTROOESOPHAGEAL REFLUX DISEASE
  6. AMIODARONE [Concomitant]
     Active Substance: AMIODARONE
  7. ASAFLOW [Concomitant]
     Active Substance: ASPIRIN
  8. COVERSYL [Concomitant]
     Active Substance: PERINDOPRIL

REACTIONS (2)
  - Cerebral haemorrhage [Recovering/Resolving]
  - Renal failure [Unknown]

NARRATIVE: CASE EVENT DATE: 201408
